FAERS Safety Report 9829670 (Version 1)
Quarter: 2014Q1

REPORT INFORMATION
  Report Type: Spontaneous
  Country: US (occurrence: US)
  Receive Date: 20140120
  Receipt Date: 20140120
  Transmission Date: 20141002
  Serious: Yes (Death)
  Sender: FDA-Public Use
  Company Number: US-JNJFOC-20140108806

PATIENT
  Age: 32 Year
  Sex: Female

DRUGS (3)
  1. SALICYLATE [Suspect]
     Indication: SUICIDE ATTEMPT
     Route: 048
  2. ACETAMINOPHEN [Suspect]
     Route: 048
  3. ACETAMINOPHEN [Suspect]
     Indication: COMPLETED SUICIDE
     Route: 048

REACTIONS (1)
  - Toxicity to various agents [Fatal]
